FAERS Safety Report 7423284-4 (Version None)
Quarter: 2011Q2

REPORT INFORMATION
  Report Type: 
  Country: None (occurrence: None)
  Receive Date: 20110419
  Receipt Date: 20101019
  Transmission Date: 20111010
  Serious: Yes (Hospitalization)
  Sender: FDA-Public Use
  Company Number: US-BAYER-201029955NA

PATIENT
  Age: 22 Year
  Sex: Female
  Weight: 87.982 kg

DRUGS (7)
  1. AMOXICILLIN [Concomitant]
     Indication: SINUSITIS
     Dosage: UNK UNK, PRN
     Dates: start: 20070101
  2. YAZ [Suspect]
     Indication: CONTRACEPTION
     Dosage: UNK UNK, QD
     Route: 048
     Dates: start: 20080526, end: 20100129
  3. EXCEDRIN (MIGRAINE) [Concomitant]
     Indication: PAIN
     Dosage: UNK UNK, PRN
  4. MULTI-VITAMIN [Concomitant]
     Indication: VITAMIN SUPPLEMENTATION
     Dosage: UNK
     Dates: start: 20100105, end: 20100110
  5. MOTRIN [Concomitant]
     Indication: PAIN
     Dosage: UNK UNK, PRN
  6. ADVIL LIQUI-GELS [Concomitant]
     Indication: PAIN
     Dosage: UNK UNK, PRN
  7. IBUPROFEN [Concomitant]
     Indication: PAIN
     Dosage: UNK UNK, PRN

REACTIONS (5)
  - MUSCULOSKELETAL CHEST PAIN [None]
  - THROMBOSIS [None]
  - CYST [None]
  - DYSPNOEA [None]
  - PULMONARY EMBOLISM [None]
